FAERS Safety Report 6481071-8 (Version None)
Quarter: 2009Q4

REPORT INFORMATION
  Report Type: 
  Country: None (occurrence: None)
  Receive Date: 20091208
  Receipt Date: 20091202
  Transmission Date: 20100525
  Serious: Yes (Other)
  Sender: FDA-Public Use
  Company Number: AR-ABBOTT-09P-007-0611793-00

PATIENT
  Sex: Male
  Weight: 88 kg

DRUGS (5)
  1. VALCOTE ER [Suspect]
     Indication: SCHIZOPHRENIA
     Route: 048
     Dates: start: 20070101, end: 20081101
  2. VALCOTE ER [Suspect]
     Route: 048
     Dates: start: 20080101
  3. RISPERIDONE [Concomitant]
     Indication: SCHIZOPHRENIA
     Route: 048
     Dates: start: 20080901
  4. PAROXETINE HCL [Concomitant]
     Indication: SCHIZOPHRENIA
     Dosage: EACH 25 DAYS
     Route: 050
     Dates: start: 20070101
  5. PAROXETINE HCL [Concomitant]
     Route: 048
     Dates: start: 20091001

REACTIONS (1)
  - ANTICONVULSANT DRUG LEVEL DECREASED [None]
